FAERS Safety Report 18900037 (Version 2)
Quarter: 2021Q2

REPORT INFORMATION
  Report Type: Spontaneous
  Country: FR (occurrence: FR)
  Receive Date: 20210216
  Receipt Date: 20210423
  Transmission Date: 20210717
  Serious: Yes (Other)
  Sender: FDA-Public Use
  Company Number: NVSC2021FR029672

PATIENT
  Age: 70 Year
  Sex: Female
  Weight: 54 kg

DRUGS (10)
  1. PREDNISOLONE. [Suspect]
     Active Substance: PREDNISOLONE
     Indication: PROPHYLAXIS OF NAUSEA AND VOMITING
     Dosage: 40 MG, CYCLIC
     Route: 048
     Dates: start: 20201006, end: 20201216
  2. ESOMEPRAZOLE. [Suspect]
     Active Substance: ESOMEPRAZOLE MAGNESIUM
     Indication: GASTRITIS
     Dosage: UNK (INCONNUE)
     Route: 048
  3. PRIMPERAN [Suspect]
     Active Substance: METOCLOPRAMIDE HYDROCHLORIDE
     Indication: NAUSEA
     Dosage: 150 MG, CYCLIC
     Route: 048
     Dates: start: 20201006, end: 20201221
  4. ZARZIO [Suspect]
     Active Substance: FILGRASTIM
     Indication: NEUTROPENIA
     Dosage: 4 DF, CYCLIC, (STRENGTH: 30 MU/0.5 ML)
     Route: 058
     Dates: start: 20201010, end: 20201223
  5. ONDANSETRON [Suspect]
     Active Substance: ONDANSETRON
     Indication: PROPHYLAXIS OF NAUSEA AND VOMITING
     Dosage: 8 MG, CYCLIC
     Route: 048
     Dates: start: 20201006, end: 20201216
  6. EMEND [Suspect]
     Active Substance: APREPITANT
     Dosage: 160 MG, CYCLIC, (STRENGTH: 80 MG)
     Route: 048
     Dates: start: 20201007, end: 20201219
  7. CAELYX [Suspect]
     Active Substance: DOXORUBICIN HYDROCHLORIDE
     Indication: BREAST CANCER
     Dosage: 56 MG,CYCLIC
     Route: 042
     Dates: start: 20201006, end: 20201216
  8. TRIMEBUTINE [Suspect]
     Active Substance: TRIMEBUTINE
     Indication: PRODUCT USED FOR UNKNOWN INDICATION
     Dosage: UNK (INCONNUE)
     Route: 048
  9. ALPRAZOLAM. [Suspect]
     Active Substance: ALPRAZOLAM
     Indication: ANXIETY
     Dosage: UNK (INCONNUE)
     Route: 048
  10. EMEND [Suspect]
     Active Substance: APREPITANT
     Indication: PROPHYLAXIS OF NAUSEA AND VOMITING
     Dosage: 1 DF, CYCLIC (STRENGTH: 125 MG)
     Route: 048
     Dates: start: 20201006, end: 20201216

REACTIONS (1)
  - Interstitial lung disease [Not Recovered/Not Resolved]

NARRATIVE: CASE EVENT DATE: 20210113
